FAERS Safety Report 9168421 (Version 2)
Quarter: 2013Q2

REPORT INFORMATION
  Report Type: Spontaneous
  Country: US (occurrence: US)
  Receive Date: 20130318
  Receipt Date: 20130412
  Transmission Date: 20140414
  Serious: Yes (Other)
  Sender: FDA-Public Use
  Company Number: US-LUNDBECK-DKLU1089621

PATIENT
  Sex: 0

DRUGS (3)
  1. ONFI [Suspect]
     Indication: PRODUCT USED FOR UNKNOWN INDICATION
  2. BENZODIAZEPINE [Suspect]
     Indication: PRODUCT USED FOR UNKNOWN INDICATION
  3. ANTIEPILEPTICS [Suspect]
     Indication: PRODUCT USED FOR UNKNOWN INDICATION

REACTIONS (2)
  - Status epilepticus [Unknown]
  - Convulsion [Unknown]
